FAERS Safety Report 9354248 (Version 1)
Quarter: 2013Q2

REPORT INFORMATION
  Report Type: Spontaneous
  Country: CN (occurrence: CN)
  Receive Date: 20130618
  Receipt Date: 20130618
  Transmission Date: 20140414
  Serious: No
  Sender: FDA-Public Use
  Company Number: CN-ASTRAZENECA-2013SE44036

PATIENT
  Age: 754 Month
  Sex: Male
  Weight: 85 kg

DRUGS (2)
  1. NEXIUM [Suspect]
     Indication: GASTROOESOPHAGEAL REFLUX DISEASE
     Route: 048
     Dates: start: 20120805, end: 20120815
  2. RUIQI [Suspect]
     Indication: GASTROOESOPHAGEAL REFLUX DISEASE
     Route: 048
     Dates: start: 20120805, end: 20120815

REACTIONS (5)
  - Fixed eruption [Recovered/Resolved]
  - Cheilitis [Recovered/Resolved]
  - Lip oedema [Recovered/Resolved]
  - Pruritus [Unknown]
  - Lip swelling [Unknown]
